FAERS Safety Report 9973875 (Version 3)
Quarter: 2014Q2

REPORT INFORMATION
  Report Type: Spontaneous
  Country: IT (occurrence: IT)
  Receive Date: 20140306
  Receipt Date: 20140417
  Transmission Date: 20141212
  Serious: Yes (Hospitalization)
  Sender: FDA-Public Use
  Company Number: IT-TEVA-465018ISR

PATIENT
  Age: 74 Year
  Sex: Female

DRUGS (1)
  1. FLUOROURACILE TEVA [Suspect]
     Indication: HEAD AND NECK CANCER
     Dosage: 280 MILLIGRAM DAILY;
     Route: 042
     Dates: start: 20140211, end: 20140218

REACTIONS (2)
  - Mucosal inflammation [Recovering/Resolving]
  - Off label use [Unknown]
